FAERS Safety Report 25396367 (Version 1)
Quarter: 2025Q2

REPORT INFORMATION
  Report Type: Report from Study
  Country: PT (occurrence: PT)
  Receive Date: 20250604
  Receipt Date: 20250604
  Transmission Date: 20250717
  Serious: Yes (Life-Threatening, Hospitalization, Other)
  Sender: ABBVIE
  Company Number: PT-DR. FALK PHARMA GMBH-SA-117-25

PATIENT
  Age: 41 Year
  Sex: Female

DRUGS (1)
  1. MESALAMINE [Suspect]
     Active Substance: MESALAMINE
     Indication: Colitis ulcerative
     Dosage: 3 GRAM, QD?500MG GASTRO-RESISTANT TABLETS
     Route: 048
     Dates: start: 2016, end: 2018

REACTIONS (1)
  - Tubulointerstitial nephritis [Recovered/Resolved]

NARRATIVE: CASE EVENT DATE: 20181101
